FAERS Safety Report 25986275 (Version 1)
Quarter: 2025Q4

REPORT INFORMATION
  Report Type: Spontaneous
  Country: US (occurrence: US)
  Receive Date: 20251031
  Receipt Date: 20251031
  Transmission Date: 20260117
  Serious: No
  Sender: AXSOME THERAPEUTICS
  Company Number: US-AXS-AXS202510-001807

PATIENT
  Age: 60 Year

DRUGS (1)
  1. AUVELITY [Suspect]
     Active Substance: BUPROPION HYDROCHLORIDE\DEXTROMETHORPHAN HYDROBROMIDE
     Indication: Product used for unknown indication
     Route: 048

REACTIONS (6)
  - Malaise [Unknown]
  - Withdrawal syndrome [Unknown]
  - Anger [Unknown]
  - Agitation [Unknown]
  - Anxiety [Unknown]
  - Therapy interrupted [Unknown]
